FAERS Safety Report 19867072 (Version 1)
Quarter: 2021Q3

REPORT INFORMATION
  Report Type: Report from Study
  Country: FR (occurrence: FR)
  Receive Date: 20210921
  Receipt Date: 20210921
  Transmission Date: 20211014
  Serious: Yes (Hospitalization, Other)
  Sender: FDA-Public Use
  Company Number: FR-TAKEDA-2021TUS057375

PATIENT
  Age: 34 Year
  Sex: Female

DRUGS (16)
  1. TEDUGLUTIDE [Suspect]
     Active Substance: TEDUGLUTIDE
     Indication: SHORT-BOWEL SYNDROME
     Dosage: 0.050 MILLIGRAM/KILOGRAM, QD
     Route: 065
     Dates: start: 20160706, end: 202004
  2. SPASMAG [Concomitant]
     Indication: HYPOMAGNESAEMIA
     Dosage: 500 MILLILITER, 2/WEEK IN 5AMPS
     Route: 042
     Dates: start: 20210722
  3. NUTRYELT [Concomitant]
     Active Substance: IRON\MINERALS\POTASSIUM IOD\SODIUM FLUORIDE\SODIUM MOLYBDATE\SODIUM SELENITE\ZINC
     Indication: POLYARTHRITIS
     Dosage: 500 MILLILITER, 1/WEEK IN 1AMP
     Route: 042
     Dates: start: 20210610, end: 20210621
  4. CERNEVIT [Concomitant]
     Active Substance: VITAMINS
     Indication: POLYARTHRITIS
     Dosage: 500 MILLILITER, 1/WEEK IN 1 AMP
     Route: 042
     Dates: start: 20210610, end: 20210721
  5. TEDUGLUTIDE [Suspect]
     Active Substance: TEDUGLUTIDE
     Indication: SHORT-BOWEL SYNDROME
     Dosage: 0.050 MILLIGRAM/KILOGRAM, QD
     Route: 065
     Dates: start: 20160706, end: 202004
  6. MAGNESIUM [Concomitant]
     Active Substance: MAGNESIUM
     Indication: HYPOMAGNESAEMIA
     Dosage: 1 DOSAGE FORM, BID
     Route: 048
     Dates: start: 20210610
  7. CERNEVIT [Concomitant]
     Active Substance: VITAMINS
     Indication: CHONDROCALCINOSIS
     Dosage: 500 MILLILITER, 1/WEEK IN 1 AMP
     Route: 042
     Dates: start: 20210107, end: 20210609
  8. NUTRYELT [Concomitant]
     Active Substance: IRON\MINERALS\POTASSIUM IOD\SODIUM FLUORIDE\SODIUM MOLYBDATE\SODIUM SELENITE\ZINC
     Indication: HYPOMAGNESAEMIA
     Dosage: 500 MILLILITER, 2/WEEK IN 1AMP
     Route: 042
     Dates: start: 20210722
  9. NUTRYELT [Concomitant]
     Active Substance: IRON\MINERALS\POTASSIUM IOD\SODIUM FLUORIDE\SODIUM MOLYBDATE\SODIUM SELENITE\ZINC
     Indication: CHONDROCALCINOSIS
     Dosage: 500 MILLILITER, 1/WEEK IN 1AMP
     Route: 042
     Dates: start: 20210107, end: 20210609
  10. TEDUGLUTIDE [Suspect]
     Active Substance: TEDUGLUTIDE
     Indication: SHORT-BOWEL SYNDROME
     Dosage: 0.050 MILLIGRAM/KILOGRAM, QD
     Route: 065
     Dates: start: 20160706, end: 202004
  11. TEDUGLUTIDE [Suspect]
     Active Substance: TEDUGLUTIDE
     Indication: SHORT-BOWEL SYNDROME
     Dosage: 0.050 MILLIGRAM/KILOGRAM, QD
     Route: 065
     Dates: start: 20160706, end: 202004
  12. MAGNESIUM [Concomitant]
     Active Substance: MAGNESIUM
     Indication: CHONDROCALCINOSIS
  13. CERNEVIT [Concomitant]
     Active Substance: VITAMINS
     Indication: HYPOMAGNESAEMIA
     Dosage: 500 MILLILITER, 2/WEEK IN 1AMP
     Route: 042
     Dates: start: 20210722
  14. MAGNESIUM [Concomitant]
     Active Substance: MAGNESIUM
     Indication: POLYARTHRITIS
  15. SPASMAG [Concomitant]
     Indication: POLYARTHRITIS
     Dosage: 500 MILLILITER, 1/WEEK IN 5AMPS
     Route: 042
     Dates: start: 20210610, end: 20210721
  16. SPASMAG [Concomitant]
     Indication: CHONDROCALCINOSIS
     Dosage: 500 MILLILITER, 1/WEEK IN 2AMPS
     Route: 042
     Dates: start: 20210107, end: 20210609

REACTIONS (3)
  - Pulmonary tuberculosis [Recovered/Resolved]
  - Pyrexia [Recovered/Resolved]
  - Polyarthritis [Not Recovered/Not Resolved]

NARRATIVE: CASE EVENT DATE: 202010
